FAERS Safety Report 9749502 (Version 1)
Quarter: 2013Q4

REPORT INFORMATION
  Report Type: Spontaneous
  Country: US (occurrence: None)
  Receive Date: 20131211
  Receipt Date: 20131211
  Transmission Date: 20140711
  Serious: Yes (Life-Threatening)
  Sender: FDA-Public Use
  Company Number: None

PATIENT
  Age: 72 Year
  Sex: Male
  Weight: 87.6 kg

DRUGS (1)
  1. LEXISCAN [Suspect]
     Indication: CARDIAC STRESS TEST
     Dates: start: 20131029

REACTIONS (7)
  - Bundle branch block left [None]
  - Pain in extremity [None]
  - Hypoaesthesia [None]
  - Headache [None]
  - Nausea [None]
  - Vomiting [None]
  - Myocardial ischaemia [None]
